FAERS Safety Report 7796974-1 (Version None)
Quarter: 2011Q4

REPORT INFORMATION
  Report Type: 
  Country: None (occurrence: None)
  Receive Date: 20111005
  Receipt Date: 20111005
  Transmission Date: 20120403
  Serious: Yes (Life-Threatening)
  Sender: FDA-Public Use
  Company Number: None

PATIENT
  Age: 48 Year
  Sex: Female
  Weight: 78.017 kg

DRUGS (1)
  1. COPAXONE [Suspect]
     Indication: MULTIPLE SCLEROSIS
     Dosage: 20 MG
     Route: 058
     Dates: start: 20110815, end: 20111003

REACTIONS (7)
  - DYSPNOEA [None]
  - HYPERHIDROSIS [None]
  - CORONARY ARTERY THROMBOSIS [None]
  - CORONARY ARTERY EMBOLISM [None]
  - ELECTROCARDIOGRAM ST SEGMENT ELEVATION [None]
  - CHEST PAIN [None]
  - MYOCARDIAL INFARCTION [None]
